FAERS Safety Report 9588435 (Version 1)
Quarter: 2013Q4

REPORT INFORMATION
  Report Type: Spontaneous
  Country: US (occurrence: US)
  Receive Date: 20131003
  Receipt Date: 20131003
  Transmission Date: 20140711
  Serious: No
  Sender: FDA-Public Use
  Company Number: US-AMGEN-USASP2012064072

PATIENT
  Sex: Female
  Weight: 70.75 kg

DRUGS (18)
  1. ENBREL [Suspect]
     Indication: PRODUCT USED FOR UNKNOWN INDICATION
     Dosage: 50 MG, QWK
     Route: 058
  2. SIMVASTATIN [Concomitant]
     Dosage: 40 MG, UNK
  3. VITAMIN D3 [Concomitant]
     Dosage: UNK
  4. TOBRAMYCIN/DEXAMETHASONE [Concomitant]
     Dosage: UNK
  5. FML-S [Concomitant]
     Dosage: UNK
  6. LIQUIFILM [Concomitant]
     Dosage: UNK
  7. JANUVIA [Concomitant]
     Dosage: 100 MG, UNK
  8. PREDNISONE [Concomitant]
     Dosage: 20 MG, UNK
  9. FOLIC ACID [Concomitant]
     Dosage: 1 MG, UNK
  10. LEFLUNOMIDE [Concomitant]
     Dosage: 20 MG, UNK
  11. ACTONEL [Concomitant]
     Dosage: 35 MG, UNK
  12. FERROUS SULFATE [Concomitant]
     Dosage: 325 MG, UNK
  13. CALCIUM + VIT D [Concomitant]
     Dosage: 500
  14. TYLENOL COLD                       /00384601/ [Concomitant]
     Dosage: 20 MG, UNK
  15. SKELAXIN                           /00611501/ [Concomitant]
     Dosage: 800 MG, UNK
  16. METFORMIN [Concomitant]
     Dosage: 500 MG, UNK
  17. LISINOPRIL [Concomitant]
     Dosage: 2.5 MG, UNK
  18. AZITHROMYCIN [Concomitant]
     Dosage: 1 GM.PCK

REACTIONS (1)
  - Sinusitis [Unknown]
